FAERS Safety Report 8056312-6 (Version None)
Quarter: 2011Q4

REPORT INFORMATION
  Report Type: 
  Country: None (occurrence: None)
  Receive Date: 20111219
  Receipt Date: 20110826
  Transmission Date: 20120403
  Serious: Yes (Other)
  Sender: FDA-Public Use
  Company Number: WAES 1108USA03366

PATIENT
  Sex: Female
  Weight: 112.4921 kg

DRUGS (11)
  1. ELAVIL [Concomitant]
  2. LABETALOL HYDROCHLORIDE [Concomitant]
  3. ALLOPURINOL [Concomitant]
  4. ASPIRIN [Concomitant]
  5. CHLORTHALIDONE [Concomitant]
  6. GLIPIZIDE [Concomitant]
  7. JANUVIA [Suspect]
     Indication: TYPE 2 DIABETES MELLITUS
     Dosage: 100 MG/DAILY/PO
     Route: 048
     Dates: start: 20110331, end: 20110803
  8. ZANTAC [Concomitant]
  9. ZANAFLEX [Concomitant]
  10. AMLODIPINE [Concomitant]
  11. SPIRONOLACTONE [Concomitant]

REACTIONS (2)
  - RENAL FAILURE ACUTE [None]
  - BLOOD CREATININE INCREASED [None]
